FAERS Safety Report 18821678 (Version 1)
Quarter: 2021Q1

REPORT INFORMATION
  Report Type: Spontaneous
  Country: US (occurrence: US)
  Receive Date: 20210202
  Receipt Date: 20210202
  Transmission Date: 20210419
  Serious: Yes (Life-Threatening, Hospitalization)
  Sender: FDA-Public Use
  Company Number: US-MYLANLABS-2021M1006171

PATIENT
  Age: 59 Year
  Sex: Female

DRUGS (2)
  1. PHENYLEPHRINE [Concomitant]
     Active Substance: PHENYLEPHRINE HYDROCHLORIDE
     Indication: ATRIAL FIBRILLATION
     Dosage: 200 MICROGRAM, BOLUS OVER THE COURSE OF 10 MINUTES
     Route: 065
  2. METOPROLOL. [Suspect]
     Active Substance: METOPROLOL
     Indication: ATRIAL FIBRILLATION
     Dosage: 5 MILLIGRAM, TOTAL TWO BOLUS DOSES
     Route: 065

REACTIONS (1)
  - Drug ineffective [Unknown]
